FAERS Safety Report 7394018-7 (Version None)
Quarter: 2011Q2

REPORT INFORMATION
  Report Type: 
  Country: None (occurrence: None)
  Receive Date: 20110405
  Receipt Date: 20100820
  Transmission Date: 20111010
  Serious: No
  Sender: FDA-Public Use
  Company Number: US-AMGEN-KDL432678

PATIENT
  Sex: Female

DRUGS (1)
  1. NEULASTA [Suspect]
     Indication: CHEMOTHERAPY
     Dosage: UNK UNK, UNK

REACTIONS (5)
  - CHEST DISCOMFORT [None]
  - SCREAMING [None]
  - CHEST PAIN [None]
  - DYSPNOEA [None]
  - BACK PAIN [None]
